FAERS Safety Report 23731944 (Version 1)
Quarter: 2024Q2

REPORT INFORMATION
  Report Type: Spontaneous
  Country: US (occurrence: None)
  Receive Date: 20240410
  Receipt Date: 20240410
  Transmission Date: 20240716
  Serious: Yes (Death)
  Sender: FDA-Public Use
  Company Number: None

PATIENT
  Age: 73 Year
  Sex: Female

DRUGS (27)
  1. TADALAFIL [Suspect]
     Active Substance: TADALAFIL
     Indication: Pulmonary hypertension
     Dosage: 20MG QD ORAL
     Route: 048
     Dates: start: 20200909, end: 20231216
  2. SELEXIPAG [Concomitant]
     Active Substance: SELEXIPAG
  3. TORSEMIDE [Concomitant]
     Active Substance: TORSEMIDE
  4. bryna HFA [Concomitant]
  5. SPIRONOLACTONE [Concomitant]
  6. SPIRIVA [Concomitant]
     Active Substance: TIOTROPIUM BROMIDE MONOHYDRATE
  7. POTASSIUM CHLORIDE [Concomitant]
  8. ACETAMINOPHEN [Concomitant]
  9. BISACODYL [Concomitant]
     Active Substance: BISACODYL
  10. TRAZODONE [Concomitant]
  11. MONTELUKAST [Concomitant]
  12. FOLIC ACID [Concomitant]
  13. FLUOXETINE [Concomitant]
  14. MELATONIN [Concomitant]
  15. PANTOPRAZOLE [Concomitant]
  16. GABAPENTIN [Concomitant]
  17. ipratopium [Concomitant]
  18. MUCINEX [Concomitant]
     Active Substance: GUAIFENESIN
  19. XIFAXAN [Concomitant]
  20. estract vag cream [Concomitant]
  21. nystatin top powder [Concomitant]
  22. NARCAN [Concomitant]
  23. AMIODARONE [Concomitant]
  24. fluxetine [Concomitant]
  25. aspirin [Concomitant]
  26. flonase [Concomitant]
  27. VITAMINS [Concomitant]
     Active Substance: VITAMINS

REACTIONS (1)
  - Death [None]

NARRATIVE: CASE EVENT DATE: 20231216
